FAERS Safety Report 9066694 (Version 1)
Quarter: 2013Q1

REPORT INFORMATION
  Report Type: Spontaneous
  Country: US (occurrence: US)
  Receive Date: 20130214
  Receipt Date: 20130214
  Transmission Date: 20140127
  Serious: Yes (Other)
  Sender: FDA-Public Use
  Company Number: US-BAYER-2013-017792

PATIENT
  Age: 72 Year
  Sex: Female
  Weight: 52.15 kg

DRUGS (8)
  1. BRONKAID [Suspect]
     Indication: ASTHMA
     Dosage: 1 DF, QD
     Route: 048
     Dates: start: 1971
  2. PRIMETINE MIST [Concomitant]
  3. ADVANCED D [Concomitant]
  4. ACAI BERRY [Concomitant]
  5. AMINO BLEND [Concomitant]
  6. TUMERIC [Concomitant]
  7. POTASSIUM [Concomitant]
  8. MAGNESIUM GLYCINATE [Concomitant]

REACTIONS (4)
  - Coeliac disease [Not Recovered/Not Resolved]
  - Pneumonia [Recovered/Resolved]
  - Incorrect drug administration duration [None]
  - Milk allergy [Not Recovered/Not Resolved]
